FAERS Safety Report 6537982-8 (Version None)
Quarter: 2010Q1

REPORT INFORMATION
  Report Type: 
  Country: None (occurrence: None)
  Receive Date: 20100114
  Receipt Date: 20100104
  Transmission Date: 20100710
  Serious: Yes (Death)
  Sender: FDA-Public Use
  Company Number: US-PFIZER INC-2010000964

PATIENT
  Age: 33 Year
  Sex: Female

DRUGS (3)
  1. VERAPAMIL HCL [Suspect]
     Route: 048
  2. TEMAZEPAM [Suspect]
     Route: 048
  3. QUETIAPINE [Suspect]
     Route: 048

REACTIONS (3)
  - COMPLETED SUICIDE [None]
  - SELF INJURIOUS BEHAVIOUR [None]
  - SUBSTANCE ABUSE [None]
